FAERS Safety Report 4626827-9 (Version None)
Quarter: 2005Q2

REPORT INFORMATION
  Report Type: 
  Country: None (occurrence: None)
  Receive Date: 20050405
  Receipt Date: 20041213
  Transmission Date: 20051028
  Serious: Yes (Hospitalization)
  Sender: FDA-Public Use
  Company Number: DE-JNJFOC-20041203293

PATIENT
  Sex: Female

DRUGS (3)
  1. DURAGESIC-100 [Suspect]
     Indication: NEUROPATHIC PAIN
     Route: 062
  2. DURAGESIC-100 [Suspect]
     Route: 062
  3. DIPYRONE TAB [Concomitant]
     Route: 065

REACTIONS (5)
  - ARRHYTHMIA [None]
  - DRUG WITHDRAWAL SYNDROME [None]
  - FLATULENCE [None]
  - HYPOTENSION [None]
  - SYNCOPE [None]
